FAERS Safety Report 9235608 (Version 1)
Quarter: 2013Q1

REPORT INFORMATION
  Report Type: Spontaneous
  Country: US (occurrence: None)
  Receive Date: 20121031
  Receipt Date: 20121031
  Transmission Date: 20140127
  Serious: Yes (Other)
  Sender: FDA-Public Use
  Company Number: PHEH2012US011451

PATIENT
  Age: 48 Year
  Sex: Female

DRUGS (4)
  1. GILENYA (FTY) CAPSULE, 0.5MG [Suspect]
     Route: 048
     Dates: start: 20120129, end: 20120604
  2. VESICARE (SOLIFENACIN) [Concomitant]
  3. BACLOFEN (BACLOFEN) [Concomitant]
  4. ACETAMINOPHEN (PARACETAMOL) [Concomitant]

REACTIONS (3)
  - Herpes zoster [None]
  - Skin lesion [None]
  - Rash [None]
